FAERS Safety Report 25167318 (Version 1)
Quarter: 2025Q2

REPORT INFORMATION
  Report Type: Spontaneous
  Country: US (occurrence: None)
  Receive Date: 20250404
  Receipt Date: 20250404
  Transmission Date: 20250717
  Serious: Yes (Life-Threatening, Hospitalization)
  Sender: FDA-CTU
  Company Number: None

PATIENT
  Age: 84 Year
  Sex: Male
  Weight: 75.3 kg

DRUGS (2)
  1. ZANUBRUTINIB [Suspect]
     Active Substance: ZANUBRUTINIB
     Indication: Waldenstrom^s macroglobulinaemia
     Dosage: FREQUENCY : TWICE A DAY;?
     Route: 048
     Dates: start: 20240415, end: 20250329
  2. Aspirin 81mg once daily [Concomitant]
     Dates: start: 20030101, end: 20250329

REACTIONS (2)
  - Basal ganglia haemorrhage [None]
  - Cerebral haemorrhage [None]

NARRATIVE: CASE EVENT DATE: 20250329
